FAERS Safety Report 7369139-5 (Version None)
Quarter: 2011Q1

REPORT INFORMATION
  Report Type: 
  Country: None (occurrence: None)
  Receive Date: 20110323
  Receipt Date: 20110321
  Transmission Date: 20110831
  Serious: No
  Sender: FDA-Public Use
  Company Number: US-PFIZER INC-2011062671

PATIENT
  Sex: Male
  Weight: 90.703 kg

DRUGS (4)
  1. CHANTIX [Suspect]
     Indication: SMOKING CESSATION THERAPY
     Dosage: 0.5 MG, 1X/DAY
     Route: 048
     Dates: start: 20110311, end: 20110301
  2. VITAMIN D [Concomitant]
     Dosage: UNK
  3. PAXIL [Concomitant]
     Dosage: UNK
  4. CHANTIX [Suspect]
     Dosage: 0.5 MG, 2X/DAY
     Dates: start: 20110301

REACTIONS (2)
  - PARAESTHESIA [None]
  - FEELING HOT [None]
